FAERS Safety Report 6072197-1 (Version None)
Quarter: 2009Q1

REPORT INFORMATION
  Report Type: 
  Country: None (occurrence: None)
  Receive Date: 20090206
  Receipt Date: 20090206
  Transmission Date: 20090719
  Serious: Yes (Hospitalization)
  Sender: FDA-Public Use
  Company Number: None

PATIENT
  Sex: Male
  Weight: 104.1 kg

DRUGS (7)
  1. PEMETREXED [Suspect]
     Indication: NON-SMALL CELL LUNG CANCER STAGE IV
     Dosage: 400MG/M2 Q2 WEEKS IV
     Route: 042
     Dates: start: 20081022, end: 20090129
  2. GEMCITABINE [Suspect]
     Indication: NON-SMALL CELL LUNG CANCER STAGE IV
     Dosage: 1200MG/M2 Q2 WEEKS IV
     Route: 042
     Dates: start: 20081022, end: 20090129
  3. BEVACIZUMAB [Suspect]
     Indication: NON-SMALL CELL LUNG CANCER STAGE IV
     Dosage: 10MG/KG Q2 WEEKS IV
     Route: 042
     Dates: start: 20081022, end: 20090129
  4. FOLIC ACID [Concomitant]
  5. VITAMIN B-12 [Concomitant]
  6. LOVENOX [Concomitant]
  7. NORCO [Concomitant]

REACTIONS (2)
  - DEEP VEIN THROMBOSIS [None]
  - PULMONARY EMBOLISM [None]
